FAERS Safety Report 19990460 (Version 1)
Quarter: 2021Q4

REPORT INFORMATION
  Report Type: Spontaneous
  Country: JP (occurrence: JP)
  Receive Date: 20211025
  Receipt Date: 20211025
  Transmission Date: 20220303
  Serious: Yes (Death)
  Sender: FDA-Public Use
  Company Number: JP-NOVARTISPH-PHJP2019JP002918

PATIENT

DRUGS (2)
  1. TAFINLAR [Suspect]
     Active Substance: DABRAFENIB MESYLATE
     Indication: Pancreatic carcinoma
     Dosage: 75 MG, QD
     Route: 048
     Dates: start: 20190302
  2. MEKINIST [Suspect]
     Active Substance: TRAMETINIB DIMETHYL SULFOXIDE
     Indication: Pancreatic carcinoma
     Dosage: 1 MG, QD
     Route: 048
     Dates: start: 20190302

REACTIONS (4)
  - Pancreatic carcinoma [Fatal]
  - Malignant neoplasm progression [Fatal]
  - Product use in unapproved indication [Unknown]
  - Blood bilirubin increased [Not Recovered/Not Resolved]

NARRATIVE: CASE EVENT DATE: 20190302
